FAERS Safety Report 9098350 (Version 2)
Quarter: 2013Q1

REPORT INFORMATION
  Report Type: Spontaneous
  Country: DE (occurrence: DE)
  Receive Date: 20130117
  Receipt Date: 20130117
  Transmission Date: 20140127
  Serious: Yes (Hospitalization, Other)
  Sender: FDA-Public Use
  Company Number: PHHY2013DE002750

PATIENT
  Sex: 0

DRUGS (6)
  1. LEPONEX [Suspect]
     Indication: SCHIZOPHRENIA
     Dosage: 75 MG QD
     Dates: end: 20121225
  2. XEPLION//PALIPERIDONE [Concomitant]
     Dosage: 1 DF, QMO
     Route: 030
  3. BISOPROLOL [Concomitant]
     Dosage: 2 DF, QD
  4. PANTOZOL [Concomitant]
  5. HEPARIN [Concomitant]
  6. PERENTEROL                              /GFR/ [Concomitant]

REACTIONS (13)
  - Bundle branch block right [Unknown]
  - Pleurisy [Unknown]
  - Pleural effusion [Unknown]
  - Pericarditis [Unknown]
  - Pericardial effusion [Unknown]
  - Atrial fibrillation [Recovered/Resolved]
  - Bronchopneumonia [Unknown]
  - Pyrexia [Unknown]
  - Fatigue [Unknown]
  - Neutrophil count increased [Unknown]
  - Cough [Unknown]
  - Electrocardiogram QT prolonged [Unknown]
  - Cardiac disorder [Unknown]
